FAERS Safety Report 8420814-0 (Version None)
Quarter: 2012Q2

REPORT INFORMATION
  Report Type: 
  Country: None (occurrence: None)
  Receive Date: 20120608
  Receipt Date: 20120604
  Transmission Date: 20120825
  Serious: No
  Sender: FDA-Public Use
  Company Number: US-PFIZER INC-2012095505

PATIENT
  Sex: Male
  Weight: 74.83 kg

DRUGS (5)
  1. LYRICA [Suspect]
     Indication: HERPES ZOSTER
     Dosage: 75 MG, 1X/DAY
     Route: 048
     Dates: start: 20120101
  2. COMBIVENT [Concomitant]
     Indication: ASTHMA
     Dosage: UNK, DAILY
  3. LYRICA [Suspect]
     Dosage: 150 MG, 1X/DAY
     Route: 048
  4. LYRICA [Suspect]
     Dosage: 225 MG, 1X/DAY
     Route: 048
     Dates: end: 20120416
  5. PREDNISONE [Concomitant]
     Indication: ASTHMA
     Dosage: 10 MG, 1X/DAY

REACTIONS (5)
  - PAIN [None]
  - MUSCLE TIGHTNESS [None]
  - DIZZINESS [None]
  - MUSCLE SPASMS [None]
  - BALANCE DISORDER [None]
